FAERS Safety Report 11583436 (Version 1)
Quarter: 2015Q3

REPORT INFORMATION
  Report Type: Spontaneous
  Country: US (occurrence: None)
  Receive Date: 20150930
  Receipt Date: 20150930
  Transmission Date: 20151125
  Serious: Yes (Hospitalization)
  Sender: FDA-Public Use
  Company Number: None

PATIENT
  Age: 15 Year
  Sex: Female
  Weight: 107.2 kg

DRUGS (5)
  1. CYTARABINE. [Suspect]
     Active Substance: CYTARABINE
     Dates: end: 20150831
  2. METHOTREXATE [Suspect]
     Active Substance: METHOTREXATE
     Dates: end: 20150908
  3. VINCRISTINE SULFATE. [Suspect]
     Active Substance: VINCRISTINE SULFATE
     Dates: end: 20150921
  4. ONCASPAR [Suspect]
     Active Substance: PEGASPARGASE
     Dates: end: 20150903
  5. DAUNORUBICIN [Suspect]
     Active Substance: DAUNORUBICIN
     Dates: end: 20150917

REACTIONS (6)
  - Haemodialysis [None]
  - Blood lactic acid increased [None]
  - Bacterial sepsis [None]
  - Oliguria [None]
  - Blood creatinine increased [None]
  - Septic shock [None]

NARRATIVE: CASE EVENT DATE: 20150924
